FAERS Safety Report 16556313 (Version 1)
Quarter: 2019Q3

REPORT INFORMATION
  Report Type: Spontaneous
  Country: US (occurrence: US)
  Receive Date: 20190710
  Receipt Date: 20190710
  Transmission Date: 20191004
  Serious: Yes (Life-Threatening, Hospitalization)
  Sender: FDA-Public Use
  Company Number: US-NOVOPROD-671712

PATIENT
  Age: 25 Year
  Sex: Female

DRUGS (5)
  1. ELAGOLIX [Suspect]
     Active Substance: ELAGOLIX
     Indication: ENDOMETRIOSIS
     Dosage: 400 MG, QD (2 TABLETS (200MG EACH) DAILY)
     Route: 048
     Dates: start: 20180920, end: 20190527
  2. ACETAMINOPHEN AND CODEINE [Concomitant]
     Active Substance: ACETAMINOPHEN\CODEINE PHOSPHATE
     Indication: ENDOMETRIOSIS
     Dosage: 30/300MG AS NEEDED
     Route: 048
     Dates: start: 20180710
  3. ACTIVELLA [Suspect]
     Active Substance: ESTRADIOL\NORETHINDRONE ACETATE
     Indication: ENDOMETRIOSIS
     Dosage: 1.0/0.5MG DAILY
     Route: 048
     Dates: start: 20180920
  4. NAPROXEN. [Concomitant]
     Active Substance: NAPROXEN
     Indication: ENDOMETRIOSIS
     Dosage: 200 MG, PRN
     Route: 048
  5. IBUPROFEN. [Concomitant]
     Active Substance: IBUPROFEN
     Indication: ENDOMETRIOSIS
     Dosage: UNK
     Route: 065

REACTIONS (2)
  - Suicide attempt [Not Recovered/Not Resolved]
  - Product use in unapproved indication [Unknown]

NARRATIVE: CASE EVENT DATE: 20180920
